FAERS Safety Report 25007080 (Version 1)
Quarter: 2025Q1

REPORT INFORMATION
  Report Type: Spontaneous
  Country: RU (occurrence: RU)
  Receive Date: 20250225
  Receipt Date: 20250225
  Transmission Date: 20250409
  Serious: Yes (Other)
  Sender: JOHNSON AND JOHNSON
  Company Number: RU-BAYER-2025A025761

PATIENT
  Age: 44 Year
  Sex: Female
  Weight: 76 kg

DRUGS (2)
  1. XARELTO [Suspect]
     Active Substance: RIVAROXABAN
     Indication: Hypercoagulation
     Dosage: 20 MG, QD
     Route: 048
     Dates: start: 20250210, end: 20250211
  2. ELIQUIS [Concomitant]
     Active Substance: APIXABAN
     Indication: Hypercoagulation
     Dosage: 5 MG, QD
     Route: 048
     Dates: start: 20250211, end: 20250212

REACTIONS (1)
  - Acute abdomen [Not Recovered/Not Resolved]

NARRATIVE: CASE EVENT DATE: 20250211
